FAERS Safety Report 9401442 (Version 1)
Quarter: 2013Q3

REPORT INFORMATION
  Report Type: Spontaneous
  Country: AT (occurrence: AT)
  Receive Date: 20130716
  Receipt Date: 20130716
  Transmission Date: 20140515
  Serious: Yes (Other)
  Sender: FDA-Public Use
  Company Number: AT-AMGEN-AUTSP2013048393

PATIENT
  Sex: Female

DRUGS (4)
  1. XGEVA [Suspect]
     Indication: BREAST CANCER
  2. FASLODEX /01285001/ [Suspect]
     Dosage: 250 MG, BID
  3. HERCEPTIN [Concomitant]
  4. TYVERB [Concomitant]

REACTIONS (1)
  - Urticaria [Unknown]
